FAERS Safety Report 20169637 (Version 1)
Quarter: 2021Q4

REPORT INFORMATION
  Report Type: Spontaneous
  Country: CN (occurrence: CN)
  Receive Date: 20211210
  Receipt Date: 20211210
  Transmission Date: 20220303
  Serious: Yes (Death, Other)
  Sender: FDA-Public Use
  Company Number: CN-SA-2021SA411712

PATIENT
  Age: 62 Year
  Sex: Male

DRUGS (2)
  1. DOCETAXEL [Suspect]
     Active Substance: DOCETAXEL
     Indication: Angiosarcoma
  2. NEDAPLATIN [Suspect]
     Active Substance: NEDAPLATIN
     Indication: Angiosarcoma
     Dosage: UNK

REACTIONS (3)
  - Malignant neoplasm progression [Fatal]
  - Off label use [Unknown]
  - Drug ineffective [Unknown]
